FAERS Safety Report 8321327-7 (Version None)
Quarter: 2012Q2

REPORT INFORMATION
  Report Type: 
  Country: None (occurrence: None)
  Receive Date: 20120430
  Receipt Date: 20120424
  Transmission Date: 20120825
  Serious: Yes (Hospitalization, Other)
  Sender: FDA-Public Use
  Company Number: US-BAYER-2011-112148

PATIENT
  Age: 31 Year
  Sex: Female
  Weight: 72.562 kg

DRUGS (4)
  1. YASMIN [Suspect]
     Indication: UTERINE HAEMORRHAGE
     Dosage: UNK
     Route: 048
     Dates: start: 20020128, end: 20080212
  2. YASMIN [Suspect]
     Indication: CONTRACEPTION
  3. DROSPIRENONE AND ETHINYL ESTRADIOL [Suspect]
     Indication: UTERINE HAEMORRHAGE
     Dosage: UNK
     Route: 048
     Dates: start: 20090427, end: 20100424
  4. DROSPIRENONE AND ETHINYL ESTRADIOL [Suspect]
     Indication: CONTRACEPTION

REACTIONS (10)
  - ABDOMINAL PAIN [None]
  - GENERAL PHYSICAL HEALTH DETERIORATION [None]
  - ANXIETY [None]
  - CHOLELITHIASIS [None]
  - FLATULENCE [None]
  - PAIN [None]
  - EMOTIONAL DISTRESS [None]
  - CHOLECYSTITIS CHRONIC [None]
  - DYSPEPSIA [None]
  - DISCOMFORT [None]
